FAERS Safety Report 11605356 (Version 1)
Quarter: 2015Q4

REPORT INFORMATION
  Report Type: Report from Study
  Country: ZA (occurrence: ZA)
  Receive Date: 20151007
  Receipt Date: 20151007
  Transmission Date: 20160304
  Serious: Yes (Hospitalization)
  Sender: FDA-Public Use
  Company Number: PHHY2015ZA118332

PATIENT
  Age: 84 Year
  Sex: Female

DRUGS (7)
  1. ACLASTA [Suspect]
     Active Substance: ZOLEDRONIC ACID
     Dosage: 1 DF, (5MG/100ML) UNK
     Route: 065
     Dates: start: 2010
  2. ACLASTA [Suspect]
     Active Substance: ZOLEDRONIC ACID
     Dosage: 1 DF, (5MG/100ML) UNK
     Route: 065
     Dates: start: 201110
  3. ACLASTA [Suspect]
     Active Substance: ZOLEDRONIC ACID
     Dosage: 1 DF, (5MG/100ML) UNK
     Route: 065
     Dates: start: 201210
  4. ACLASTA [Suspect]
     Active Substance: ZOLEDRONIC ACID
     Dosage: 1 DF, (5MG/100ML) UNK
     Route: 065
     Dates: start: 2009
  5. ACLASTA [Suspect]
     Active Substance: ZOLEDRONIC ACID
     Dosage: 1 DF, (5MG/100ML) UNK
     Route: 065
     Dates: start: 201410
  6. ACLASTA [Suspect]
     Active Substance: ZOLEDRONIC ACID
     Indication: OSTEOPOROSIS
     Dosage: 1 DF, (5MG/100ML) UNK
     Route: 065
     Dates: start: 200810
  7. ACLASTA [Suspect]
     Active Substance: ZOLEDRONIC ACID
     Dosage: 1 DF, (5MG/100ML) UNK
     Route: 065
     Dates: start: 201310

REACTIONS (6)
  - Wrist fracture [Recovering/Resolving]
  - Radius fracture [Recovering/Resolving]
  - Fall [Recovering/Resolving]
  - Ulna fracture [Recovering/Resolving]
  - Femur fracture [Recovering/Resolving]
  - Tendon discomfort [Recovering/Resolving]

NARRATIVE: CASE EVENT DATE: 201401
